FAERS Safety Report 4924842-9 (Version None)
Quarter: 2006Q1

REPORT INFORMATION
  Report Type: 
  Country: None (occurrence: None)
  Receive Date: 20060227
  Receipt Date: 20051013
  Transmission Date: 20060701
  Serious: Yes (Hospitalization)
  Sender: FDA-Public Use
  Company Number: US-MERCK-0510USA07109

PATIENT
  Age: 62 Year
  Sex: Female

DRUGS (2)
  1. VIOXX [Suspect]
     Route: 048
     Dates: start: 20021206
  2. VIOXX [Suspect]
     Route: 048
     Dates: start: 20030418, end: 20040614

REACTIONS (26)
  - AGITATION [None]
  - ARRHYTHMIA [None]
  - BLOOD POTASSIUM INCREASED [None]
  - CEREBRAL INFARCTION [None]
  - COMA [None]
  - DEAFNESS BILATERAL [None]
  - DEPRESSION [None]
  - GASTRITIS [None]
  - HAEMATURIA [None]
  - HIATUS HERNIA [None]
  - HYPOKALAEMIA [None]
  - HYPOXIC ENCEPHALOPATHY [None]
  - IMPINGEMENT SYNDROME [None]
  - INFECTION [None]
  - ISCHAEMIC HEPATITIS [None]
  - OESOPHAGITIS [None]
  - PAIN [None]
  - PNEUMONIA [None]
  - RENAL FAILURE ACUTE [None]
  - RESPIRATORY FAILURE [None]
  - SINUS TACHYCARDIA [None]
  - SLEEP APNOEA SYNDROME [None]
  - STATUS EPILEPTICUS [None]
  - THERAPEUTIC AGENT TOXICITY [None]
  - URINARY TRACT INFECTION [None]
  - VASCULAR DEMENTIA [None]
